FAERS Safety Report 9120259 (Version 1)
Quarter: 2013Q1

REPORT INFORMATION
  Report Type: Spontaneous
  Country: US (occurrence: US)
  Receive Date: 20130226
  Receipt Date: 20130226
  Transmission Date: 20140127
  Serious: Yes (Other)
  Sender: FDA-Public Use
  Company Number: US-BAYER-2013-022989

PATIENT
  Age: 39 Year
  Sex: Male

DRUGS (1)
  1. CAMPHO-PHENIQUE ANTISEPTIC LIQUID [Suspect]
     Indication: ARTHROPOD BITE
     Dosage: 1 DROP

REACTIONS (5)
  - Incorrect route of drug administration [None]
  - Accidental exposure to product [None]
  - Hypoaesthesia [Not Recovered/Not Resolved]
  - Deafness [Not Recovered/Not Resolved]
  - Dysgeusia [None]
